FAERS Safety Report 12980661 (Version 1)
Quarter: 2016Q4

REPORT INFORMATION
  Report Type: Spontaneous
  Country: US (occurrence: US)
  Receive Date: 20161128
  Receipt Date: 20161128
  Transmission Date: 20170207
  Serious: Yes (Death)
  Sender: FDA-Public Use
  Company Number: US-TEVA-715168USA

PATIENT
  Age: 41 Year
  Sex: Female
  Weight: 72.7 kg

DRUGS (2)
  1. TAPENTADOL [Suspect]
     Active Substance: TAPENTADOL
     Indication: COMPLETED SUICIDE
     Route: 048
  2. OXYCODONE HYDROCHLORIDE. [Suspect]
     Active Substance: OXYCODONE HYDROCHLORIDE
     Indication: COMPLETED SUICIDE
     Route: 048

REACTIONS (3)
  - Pulmonary oedema [Fatal]
  - Completed suicide [Fatal]
  - Pneumonia aspiration [Fatal]
